FAERS Safety Report 12210588 (Version 2)
Quarter: 2016Q2

REPORT INFORMATION
  Report Type: Spontaneous
  Country: BR (occurrence: BR)
  Receive Date: 20160325
  Receipt Date: 20160419
  Transmission Date: 20160815
  Serious: No
  Sender: FDA-Public Use
  Company Number: BR-GLAXOSMITHKLINE-BR2016GSK041520

PATIENT
  Sex: Female

DRUGS (1)
  1. ZINNAT [Suspect]
     Active Substance: CEFUROXIME AXETIL
     Indication: INFECTION
     Dosage: 1 DF, UNK, 250 MG/5 ML,10 ML OF ZINNAT EVERY
     Route: 048

REACTIONS (6)
  - Product quality issue [Unknown]
  - Product physical consistency issue [Unknown]
  - Vomiting [Unknown]
  - Product reconstitution issue [Unknown]
  - Nausea [Unknown]
  - Haematuria [Unknown]
